FAERS Safety Report 10526970 (Version 1)
Quarter: 2014Q4

REPORT INFORMATION
  Report Type: Spontaneous
  Country: US (occurrence: None)
  Receive Date: 20141017
  Receipt Date: 20141017
  Transmission Date: 20150528
  Serious: Yes (Hospitalization)
  Sender: FDA-Public Use
  Company Number: None

PATIENT
  Age: 75 Year
  Sex: Female

DRUGS (1)
  1. DABIGATRAN [Suspect]
     Active Substance: DABIGATRAN
     Route: 048
     Dates: start: 20140121, end: 20140125

REACTIONS (5)
  - Embolic stroke [None]
  - Haemorrhoidal haemorrhage [None]
  - Atrial fibrillation [None]
  - Diverticulitis [None]
  - Diverticulitis intestinal haemorrhagic [None]

NARRATIVE: CASE EVENT DATE: 20140125
